FAERS Safety Report 8833173 (Version 6)
Quarter: 2013Q1

REPORT INFORMATION
  Report Type: Spontaneous
  Country: GB (occurrence: GB)
  Receive Date: 20121010
  Receipt Date: 20130118
  Transmission Date: 20140127
  Serious: Yes (Hospitalization)
  Sender: FDA-Public Use
  Company Number: PHFR2012GB005308

PATIENT
  Age: 54 Year
  Sex: Male

DRUGS (5)
  1. CLOZARIL [Suspect]
     Indication: SCHIZOPHRENIA
     Dosage: 600 MG, DAILY
     Route: 048
     Dates: start: 20030918
  2. CLOMIPRAMINE [Suspect]
     Indication: SCHIZOAFFECTIVE DISORDER
     Dosage: 50 MG, DAILY
     Route: 048
  3. LAMOTRIGINE [Suspect]
     Indication: EPILEPSY
     Dosage: 100 MG, DAILY
     Route: 048
  4. KEPPRA [Suspect]
     Indication: EPILEPSY
     Dosage: 1000 MG,
     Route: 048
  5. HYOSCINE HYDROBROMIDE [Suspect]
     Indication: DROOLING
     Dosage: 300 UG, DAILY
     Route: 048

REACTIONS (4)
  - Urinary tract infection [Recovered/Resolved]
  - White blood cell count increased [Recovered/Resolved]
  - Differential white blood cell count abnormal [Unknown]
  - Neutrophil count increased [Recovered/Resolved]
